FAERS Safety Report 8433099-6 (Version None)
Quarter: 2012Q2

REPORT INFORMATION
  Report Type: 
  Country: None (occurrence: None)
  Receive Date: 20120613
  Receipt Date: 20120611
  Transmission Date: 20120825
  Serious: Yes (Other)
  Sender: FDA-Public Use
  Company Number: PHHY2011US17870

PATIENT
  Sex: Female

DRUGS (5)
  1. MULTI-VITAMINS [Concomitant]
  2. VALTREX [Concomitant]
     Dosage: 500 MG, UNK
  3. MELATONIN [Concomitant]
  4. GILENYA [Suspect]
     Indication: MULTIPLE SCLEROSIS
     Dosage: 0.5 MG, DAILY
     Route: 048
     Dates: start: 20101203
  5. SEASONIQUE [Concomitant]

REACTIONS (6)
  - COGNITIVE DISORDER [None]
  - EYE PAIN [None]
  - MUSCLE TWITCHING [None]
  - CONCOMITANT DISEASE AGGRAVATED [None]
  - ANXIETY [None]
  - DYSARTHRIA [None]
